FAERS Safety Report 6307562-8 (Version None)
Quarter: 2009Q3

REPORT INFORMATION
  Report Type: 
  Country: None (occurrence: None)
  Receive Date: 20090813
  Receipt Date: 20090810
  Transmission Date: 20100115
  Serious: Yes (Other)
  Sender: FDA-Public Use
  Company Number: PT-ROXANE LABORATORIES, INC.-2009-RO-00799RO

PATIENT
  Age: 26 Year
  Sex: Male

DRUGS (3)
  1. RISPERIDONE [Suspect]
     Indication: AGGRESSION
  2. RISPERIDONE [Suspect]
     Indication: SELF INJURIOUS BEHAVIOUR
  3. RISPERIDONE [Suspect]
     Indication: AFFECTIVE DISORDER

REACTIONS (1)
  - PLEUROTHOTONUS [None]
